FAERS Safety Report 6793935-6 (Version None)
Quarter: 2010Q2

REPORT INFORMATION
  Report Type: 
  Country: None (occurrence: None)
  Receive Date: 20100624
  Receipt Date: 20070412
  Transmission Date: 20101027
  Serious: No
  Sender: FDA-Public Use
  Company Number: US-PFIZER INC-ENC200700055

PATIENT
  Age: 22 Year
  Sex: Female

DRUGS (9)
  1. ARGATROBAN [Suspect]
     Indication: HEPARIN-INDUCED THROMBOCYTOPENIA
     Dosage: 2 MCG/KG/MIN
     Route: 042
     Dates: start: 20070326, end: 20070101
  2. ARGATROBAN [Suspect]
     Dosage: 2.4 MCG/KG/MIN
     Route: 042
     Dates: start: 20070101, end: 20070101
  3. ARGATROBAN [Suspect]
     Dosage: 1 MCG/KG/MIN
     Route: 042
     Dates: start: 20070101
  4. ANTICOAGULANT CITRATE DEXTROSE [Suspect]
  5. WARFARIN SODIUM [Concomitant]
  6. BACLOFEN [Concomitant]
  7. DOCUSATE SODIUM [Concomitant]
  8. ESOMEPRAZOLE MAGNESIUM [Concomitant]
  9. METHYLPREDNISOLONE SODIUM SUCCINATE [Concomitant]

REACTIONS (1)
  - ACTIVATED PARTIAL THROMBOPLASTIN TIME PROLONGED [None]
